FAERS Safety Report 14918402 (Version 1)
Quarter: 2018Q2

REPORT INFORMATION
  Report Type: Spontaneous
  Country: US (occurrence: US)
  Receive Date: 20180521
  Receipt Date: 20180521
  Transmission Date: 20180711
  Serious: Yes (Other)
  Sender: FDA-Public Use
  Company Number: PHEH2018US018775

PATIENT
  Age: 58 Year
  Sex: Female

DRUGS (2)
  1. LETROZOLE. [Suspect]
     Active Substance: LETROZOLE
     Indication: BREAST CANCER METASTATIC
     Dosage: UNK UNK, QD
     Route: 065
     Dates: start: 201801
  2. IBRANCE [Suspect]
     Active Substance: PALBOCICLIB
     Indication: BREAST CANCER METASTATIC
     Dosage: 125 MG, QD FOR 21 DAYS AND OFF FOR7 DAYS
     Route: 048
     Dates: start: 201801

REACTIONS (5)
  - Fatigue [Not Recovered/Not Resolved]
  - Dizziness [Recovering/Resolving]
  - Acne [Recovering/Resolving]
  - Metastases to bone [Unknown]
  - Infection [Unknown]

NARRATIVE: CASE EVENT DATE: 201801
